FAERS Safety Report 19485400 (Version 1)
Quarter: 2021Q3

REPORT INFORMATION
  Report Type: Spontaneous
  Country: US (occurrence: US)
  Receive Date: 20210702
  Receipt Date: 20210702
  Transmission Date: 20211014
  Serious: Yes (Other)
  Sender: FDA-Public Use
  Company Number: US-COLGATE PALMOLIVE COMPANY-20210601479

PATIENT
  Sex: Female

DRUGS (1)
  1. LADY SPEED STICK INVISIBLE DRY WILD FREESIA [Suspect]
     Active Substance: ALUMINUM ZIRCONIUM TETRACHLOROHYDREX GLY
     Dosage: UNKNOWN DOSE

REACTIONS (3)
  - Loss of personal independence in daily activities [Unknown]
  - Second degree chemical burn of skin [Unknown]
  - Pain in extremity [Unknown]

NARRATIVE: CASE EVENT DATE: 20210620
